FAERS Safety Report 5898383-9 (Version None)
Quarter: 2008Q3

REPORT INFORMATION
  Report Type: 
  Country: None (occurrence: None)
  Receive Date: 20080925
  Receipt Date: 20080108
  Transmission Date: 20090109
  Serious: No
  Sender: FDA-Public Use
  Company Number: A0686903A

PATIENT
  Age: 25 Year
  Sex: Male

DRUGS (5)
  1. WELLBUTRIN XL [Suspect]
     Indication: DEPRESSION
     Dosage: 300MG PER DAY
     Route: 048
     Dates: start: 20000101
  2. WELLBUTRIN XL [Suspect]
     Route: 048
     Dates: start: 20061201
  3. SEROQUEL [Concomitant]
  4. LYRICA [Concomitant]
  5. CYMBALTA [Concomitant]
     Dates: start: 20061201

REACTIONS (5)
  - DEPRESSION [None]
  - DRUG INEFFECTIVE [None]
  - IRRITABILITY [None]
  - MEDICATION RESIDUE [None]
  - PHARMACEUTICAL PRODUCT COMPLAINT [None]
